FAERS Safety Report 24766350 (Version 2)
Quarter: 2025Q1

REPORT INFORMATION
  Report Type: Spontaneous
  Country: US (occurrence: US)
  Receive Date: 20241223
  Receipt Date: 20250212
  Transmission Date: 20250408
  Serious: Yes (Death)
  Sender: PFIZER
  Company Number: US-PFIZER INC-202400329943

PATIENT
  Age: 81 Year
  Sex: Female
  Weight: 68.027 kg

DRUGS (1)
  1. IBRANCE [Suspect]
     Active Substance: PALBOCICLIB
     Indication: Neoplasm malignant
     Route: 048
     Dates: end: 202407

REACTIONS (1)
  - Death [Fatal]

NARRATIVE: CASE EVENT DATE: 20240727
